FAERS Safety Report 24686960 (Version 1)
Quarter: 2024Q4

REPORT INFORMATION
  Report Type: Spontaneous
  Country: DK (occurrence: DK)
  Receive Date: 20241202
  Receipt Date: 20241202
  Transmission Date: 20250115
  Serious: Yes (Life-Threatening, Hospitalization, Other)
  Sender: FRESENIUS KABI
  Company Number: None

PATIENT
  Age: 69 Year
  Sex: Female
  Weight: 51 kg

DRUGS (3)
  1. GEMCITABINE HYDROCHLORIDE [Suspect]
     Active Substance: GEMCITABINE HYDROCHLORIDE
     Indication: Cutaneous T-cell lymphoma
     Dosage: UNKNOWN DOSAGE INTERVAL?FORM OF ADMINISTRATION: CONCENTRATE FOR SOLUTION FOR INFUSION
     Route: 042
     Dates: end: 202409
  2. HYDROCORTISON MED TERRAMYCIN OG POLYMYXIN B [hydrocortisone acetate, O [Concomitant]
     Indication: Eye inflammation
     Dosage: DOSAGE: 1 DROP 3 TIMES A DAY?FOA: EYE AND EAR DROPS, SUSPENSION ?ROA: OCULAR USE
     Dates: start: 20220304
  3. Mometasone [Mometason Furoate monohydrate, Mometasone furoate] [Concomitant]
     Indication: Skin disorder
     Dates: start: 20161004

REACTIONS (6)
  - Renal failure [Not Recovered/Not Resolved]
  - Renal-limited thrombotic microangiopathy [Not Recovered/Not Resolved]
  - Coordination abnormal [Unknown]
  - Hypertension [Unknown]
  - Headache [Unknown]
  - Visual impairment [Unknown]

NARRATIVE: CASE EVENT DATE: 20200901
